FAERS Safety Report 6355117-1 (Version None)
Quarter: 2009Q3

REPORT INFORMATION
  Report Type: 
  Country: None (occurrence: None)
  Receive Date: 20090914
  Receipt Date: 20090904
  Transmission Date: 20100115
  Serious: Yes (Other)
  Sender: FDA-Public Use
  Company Number: US-ASTRAZENECA-2009SE07265

PATIENT
  Sex: Female

DRUGS (2)
  1. FASLODEX [Suspect]
     Dates: start: 20090509
  2. ZOMETA [Suspect]
     Dates: start: 20090509

REACTIONS (3)
  - HEADACHE [None]
  - PALPITATIONS [None]
  - SINUS DISORDER [None]
